FAERS Safety Report 7183250-3 (Version None)
Quarter: 2010Q4

REPORT INFORMATION
  Report Type: 
  Country: None (occurrence: None)
  Receive Date: 20101222
  Receipt Date: 20100420
  Transmission Date: 20110411
  Serious: No
  Sender: FDA-Public Use
  Company Number: A0855905A

PATIENT
  Age: 35 Year
  Sex: Female

DRUGS (4)
  1. FLUTICASONE PROPIONATE [Suspect]
     Indication: CHRONIC SINUSITIS
     Dosage: 2SPR PER DAY
     Route: 045
     Dates: start: 20050101
  2. CLARITIN [Concomitant]
  3. BIRTH CONTROL [Concomitant]
  4. MULTI-VITAMIN [Concomitant]

REACTIONS (3)
  - EPISTAXIS [None]
  - NASAL ULCER [None]
  - STAPHYLOCOCCAL INFECTION [None]
